FAERS Safety Report 11913194 (Version 1)
Quarter: 2016Q1

REPORT INFORMATION
  Report Type: Spontaneous
  Country: US (occurrence: None)
  Receive Date: 20160112
  Receipt Date: 20160112
  Transmission Date: 20160526
  Serious: No
  Sender: FDA-Public Use
  Company Number: None

PATIENT
  Age: 48 Year
  Sex: Female

DRUGS (6)
  1. MAGIC SWIZZLE [Concomitant]
  2. FONDAPARINUX [Concomitant]
     Active Substance: FONDAPARINUX
  3. MORPHINE [Concomitant]
     Active Substance: MORPHINE
  4. FAMOTIDINE. [Concomitant]
     Active Substance: FAMOTIDINE
  5. HYDROMORPHONE [Concomitant]
     Active Substance: HYDROMORPHONE
  6. INLYTA [Suspect]
     Active Substance: AXITINIB
     Indication: RENAL CANCER RECURRENT
     Route: 048
     Dates: start: 20151105, end: 20151226

REACTIONS (6)
  - Stomatitis [None]
  - Therapy cessation [None]
  - Feeding disorder [None]
  - Weight decreased [None]
  - Nausea [None]
  - Oral pain [None]

NARRATIVE: CASE EVENT DATE: 20151226
